FAERS Safety Report 6892250-X (Version None)
Quarter: 2010Q3

REPORT INFORMATION
  Report Type: 
  Country: None (occurrence: None)
  Receive Date: 20100731
  Receipt Date: 20080306
  Transmission Date: 20110219
  Serious: No
  Sender: FDA-Public Use
  Company Number: US-PFIZER INC-2008021252

PATIENT
  Sex: Male
  Weight: 90.9 kg

DRUGS (10)
  1. NORVASC [Suspect]
     Indication: HYPERTENSION
     Route: 048
     Dates: start: 20080305
  2. PLAVIX [Concomitant]
  3. ZOCOR [Concomitant]
  4. ALTACE [Concomitant]
  5. TOPROL-XL [Concomitant]
  6. HYDROCHLOROTHIAZIDE [Concomitant]
  7. AVODART [Concomitant]
  8. SYNTHROID [Concomitant]
  9. PROTONIX [Concomitant]
  10. ATIVAN [Concomitant]

REACTIONS (1)
  - HEART RATE INCREASED [None]
